FAERS Safety Report 14945744 (Version 1)
Quarter: 2018Q2

REPORT INFORMATION
  Report Type: Spontaneous
  Country: US (occurrence: US)
  Receive Date: 20180508
  Receipt Date: 20180508
  Transmission Date: 20180711
  Serious: Yes (Hospitalization)
  Sender: FDA-Public Use
  Company Number: None

PATIENT
  Age: 57 Year
  Sex: Male

DRUGS (2)
  1. CEFAZOLIN 1GRAM SAGENT [Suspect]
     Active Substance: CEFAZOLIN
     Indication: BACTERAEMIA
     Route: 042
     Dates: start: 20180419, end: 20180420
  2. CEFAZOLIN 10GRAMS SAGENT [Suspect]
     Active Substance: CEFAZOLIN
     Indication: BACTERAEMIA
     Route: 042
     Dates: start: 20180419, end: 20180420

REACTIONS (2)
  - Chromaturia [None]
  - Hypotension [None]

NARRATIVE: CASE EVENT DATE: 20180420
